FAERS Safety Report 24156075 (Version 1)
Quarter: 2024Q3

REPORT INFORMATION
  Report Type: Spontaneous
  Country: US (occurrence: US)
  Receive Date: 20240731
  Receipt Date: 20240731
  Transmission Date: 20241017
  Serious: Yes (Other)
  Sender: REGENERON
  Company Number: US-REGENERON PHARMACEUTICALS, INC.-2024-102964

PATIENT
  Sex: Female

DRUGS (13)
  1. EYLEA [Suspect]
     Active Substance: AFLIBERCEPT
     Indication: Retinal disorder
     Dosage: 2 MG, EVERY FOUR WEEKS, INTO LEFT EYE; STRENGTH: 2MG/0.05ML, FORMULATION: PFS GERRESHEIMER
  2. EYLEA [Suspect]
     Active Substance: AFLIBERCEPT
     Indication: Vision blurred
     Dosage: CURRENTLY RECEIVING INJECTIONS EVERY FIVE WEEKS; FORMULATION: PFS GERRESHEIMER
     Dates: start: 202304
  3. EYLEA [Suspect]
     Active Substance: AFLIBERCEPT
     Indication: Retinal vascular occlusion
  4. PREDNISOLONE [Concomitant]
     Active Substance: PREDNISOLONE
     Indication: Product used for unknown indication
     Dosage: UNK
  5. ATROPINE [Concomitant]
     Active Substance: ATROPINE
     Indication: Product used for unknown indication
     Dosage: EYE DROP BID
  6. EZETIMIBE [Concomitant]
     Active Substance: EZETIMIBE
     Indication: Product used for unknown indication
     Dosage: UNK
  7. GABAPENTIN [Concomitant]
     Active Substance: GABAPENTIN
     Indication: Product used for unknown indication
     Dosage: UNK
  8. ATORVASTATIN [Concomitant]
     Active Substance: ATORVASTATIN
     Indication: Product used for unknown indication
     Dosage: UNK
  9. METFORMIN [Concomitant]
     Active Substance: METFORMIN HYDROCHLORIDE
     Indication: Product used for unknown indication
     Dosage: UNK
  10. LEVOTHYROXINE [Concomitant]
     Active Substance: LEVOTHYROXINE\LEVOTHYROXINE SODIUM
     Indication: Product used for unknown indication
     Dosage: UNK
  11. LOSARTAN AND HYDROCHLOROTHIAZIDE [Concomitant]
     Active Substance: HYDROCHLOROTHIAZIDE\LOSARTAN POTASSIUM
     Indication: Product used for unknown indication
     Dosage: UNK
  12. MELOXICAM [Concomitant]
     Active Substance: MELOXICAM
     Indication: Product used for unknown indication
     Dosage: UNK
  13. SYNTHROID [Concomitant]
     Active Substance: LEVOTHYROXINE SODIUM
     Indication: Product used for unknown indication
     Dosage: UNK

REACTIONS (3)
  - Eye infection [Unknown]
  - Visual impairment [Unknown]
  - Off label use [Not Recovered/Not Resolved]
